FAERS Safety Report 22526294 (Version 1)
Quarter: 2023Q2

REPORT INFORMATION
  Report Type: Report from Study
  Country: US (occurrence: US)
  Receive Date: 20230606
  Receipt Date: 20230606
  Transmission Date: 20230722
  Serious: Yes (Death)
  Sender: FDA-Public Use
  Company Number: US-Taiho Oncology Inc-EU-2022-01816

PATIENT
  Age: 75 Year
  Sex: Female

DRUGS (10)
  1. LONSURF [Suspect]
     Active Substance: TIPIRACIL HYDROCHLORIDE\TRIFLURIDINE
     Indication: Colorectal cancer
     Dosage: UNKNOWN CYCLE
     Route: 048
     Dates: start: 20220624
  2. LONSURF [Suspect]
     Active Substance: TIPIRACIL HYDROCHLORIDE\TRIFLURIDINE
     Dosage: CURRENT CYCLE UNKNOWN
     Route: 048
  3. LONSURF [Suspect]
     Active Substance: TIPIRACIL HYDROCHLORIDE\TRIFLURIDINE
     Dosage: 40 MG EVERY MORNING AND 60 MG EVERY EVENING. CURRENT CYCLE UNKNOWN?DAILY DOSE: 100 MILLIGRAM(S)
     Route: 048
  4. TYLENOL [Concomitant]
     Active Substance: ACETAMINOPHEN
     Indication: Product used for unknown indication
  5. ZOFRAN [Concomitant]
     Active Substance: ONDANSETRON HYDROCHLORIDE
     Indication: Product used for unknown indication
  6. GABAPENTIN [Concomitant]
     Active Substance: GABAPENTIN
     Indication: Product used for unknown indication
  7. BENADRYL ALLERGY [Concomitant]
     Active Substance: DIPHENHYDRAMINE HYDROCHLORIDE
     Indication: Product used for unknown indication
  8. HYDROCODONE\IBUPROFEN [Concomitant]
     Active Substance: HYDROCODONE\IBUPROFEN
     Indication: Product used for unknown indication
     Dosage: 10- 200 MG
  9. MINERALS\VITAMINS [Concomitant]
     Active Substance: MINERALS\VITAMINS
     Indication: Product used for unknown indication
  10. XGEVA [Concomitant]
     Active Substance: DENOSUMAB
     Indication: Product used for unknown indication

REACTIONS (7)
  - Death [Fatal]
  - Dizziness [Not Recovered/Not Resolved]
  - Monocyte count decreased [Unknown]
  - Cytopenia [Unknown]
  - Nausea [Recovering/Resolving]
  - White blood cell count decreased [Not Recovered/Not Resolved]
  - Neutrophil count decreased [Not Recovered/Not Resolved]

NARRATIVE: CASE EVENT DATE: 20220709
